FAERS Safety Report 8450612-3 (Version None)
Quarter: 2012Q2

REPORT INFORMATION
  Report Type: 
  Country: None (occurrence: None)
  Receive Date: 20120620
  Receipt Date: 20120612
  Transmission Date: 20120825
  Serious: Yes (Other)
  Sender: FDA-Public Use
  Company Number: GB-UCBSA-059526

PATIENT
  Age: 31 Year
  Sex: Female

DRUGS (14)
  1. CLONAZEPAM [Concomitant]
  2. LACOSAMIDE [Suspect]
  3. ZONISAMIDE [Concomitant]
  4. TOPIRAMATE [Concomitant]
  5. PHENOBARBITAL TAB [Concomitant]
  6. BUCCAL MIDAZOLAM [Concomitant]
  7. CLOBAZAM [Concomitant]
  8. PHENOBARBITAL TAB [Concomitant]
  9. PIRACETAM [Concomitant]
  10. PHENYTOIN [Concomitant]
  11. LEVETIRACETAM [Suspect]
  12. VALPROATE SODIUM [Concomitant]
  13. VIGABATRIN [Concomitant]
     Indication: TREMOR
  14. LAMOTRIGINE [Concomitant]
     Dosage: 150 MG, 200 MG

REACTIONS (5)
  - DRUG INEFFECTIVE [None]
  - GAIT DISTURBANCE [None]
  - GENERAL PHYSICAL HEALTH DETERIORATION [None]
  - MOVEMENT DISORDER [None]
  - PARTIAL SEIZURES [None]
